FAERS Safety Report 9129480 (Version 2)
Quarter: 2013Q1

REPORT INFORMATION
  Report Type: Spontaneous
  Country: US (occurrence: US)
  Receive Date: 20130228
  Receipt Date: 20130318
  Transmission Date: 20140127
  Serious: Yes (Other)
  Sender: FDA-Public Use
  Company Number: US-ABBOTT-13P-163-1053468-00

PATIENT
  Sex: Female
  Weight: 83.99 kg

DRUGS (12)
  1. DEPAKOTE ER [Suspect]
     Indication: MIGRAINE
     Dosage: AT BEDTIME
     Route: 048
  2. DEPAKOTE ER [Suspect]
     Indication: SCHIZOAFFECTIVE DISORDER
  3. DEPAKOTE ER [Suspect]
     Indication: BIPOLAR DISORDER
  4. SEROQUEL [Concomitant]
     Indication: MIGRAINE
  5. SEROQUEL [Concomitant]
     Indication: SCHIZOAFFECTIVE DISORDER
  6. SEROQUEL [Concomitant]
     Indication: BIPOLAR DISORDER
  7. ZOLPIDEM [Concomitant]
     Indication: SLEEP DISORDER THERAPY
  8. ALPRAZOLAM [Concomitant]
     Indication: ANXIETY
  9. SERTRALINE [Concomitant]
     Indication: NERVOUSNESS
  10. BREVANA [Concomitant]
     Indication: CHRONIC OBSTRUCTIVE PULMONARY DISEASE
  11. ADVAIR [Concomitant]
     Indication: ASTHMA
  12. ADVAIR [Concomitant]
     Indication: CHRONIC OBSTRUCTIVE PULMONARY DISEASE

REACTIONS (4)
  - Dental caries [Not Recovered/Not Resolved]
  - Gingival recession [Not Recovered/Not Resolved]
  - Gingival erosion [Not Recovered/Not Resolved]
  - Gingival abscess [Unknown]
